FAERS Safety Report 8465154-9 (Version None)
Quarter: 2012Q2

REPORT INFORMATION
  Report Type: 
  Country: None (occurrence: None)
  Receive Date: 20120626
  Receipt Date: 20120620
  Transmission Date: 20120825
  Serious: Yes (Other)
  Sender: FDA-Public Use
  Company Number: US-PFIZER INC-2012149300

PATIENT
  Sex: Female
  Weight: 75.737 kg

DRUGS (2)
  1. LIPITOR [Suspect]
     Dosage: 80 MG, DAILY
     Route: 048
     Dates: start: 20120614
  2. LIPITOR [Suspect]
     Indication: BLOOD CHOLESTEROL INCREASED
     Dosage: 10 MG, DAILY
     Route: 048
     Dates: start: 19910101

REACTIONS (7)
  - LOSS OF CONSCIOUSNESS [None]
  - VERTIGO [None]
  - INNER EAR DISORDER [None]
  - BALANCE DISORDER [None]
  - HYPERHIDROSIS [None]
  - MEMORY IMPAIRMENT [None]
  - COORDINATION ABNORMAL [None]
